FAERS Safety Report 23961638 (Version 1)
Quarter: 2024Q2

REPORT INFORMATION
  Report Type: Report from Study
  Country: US (occurrence: US)
  Receive Date: 20240611
  Receipt Date: 20240611
  Transmission Date: 20240716
  Serious: Yes (Other)
  Sender: FDA-Public Use
  Company Number: US-ABBVIE-5791518

PATIENT
  Age: 73 Year
  Sex: Male

DRUGS (2)
  1. HUMIRA [Suspect]
     Active Substance: ADALIMUMAB
     Indication: Psoriatic arthropathy
     Dosage: CF. FORM STRENGTH: 40
     Route: 058
     Dates: start: 20090201
  2. HUMIRA [Suspect]
     Active Substance: ADALIMUMAB
     Dosage: CF. FORM STRENGTH: 40 MG
     Route: 058
     Dates: start: 202301

REACTIONS (2)
  - Tendon rupture [Recovered/Resolved]
  - Pain [Recovering/Resolving]

NARRATIVE: CASE EVENT DATE: 20220101
